FAERS Safety Report 8477600-5 (Version None)
Quarter: 2012Q2

REPORT INFORMATION
  Report Type: 
  Country: None (occurrence: None)
  Receive Date: 20120626
  Receipt Date: 20120626
  Transmission Date: 20120825
  Serious: Yes (Life-Threatening, Hospitalization, Disabling, Other)
  Sender: FDA-Public Use
  Company Number: None

PATIENT
  Sex: Male
  Weight: 104.5 kg

DRUGS (1)
  1. BUPROPION HCL [Suspect]
     Indication: MAJOR DEPRESSION
     Dosage: 200 MG TWICE DAILY ORAL
     Route: 048
     Dates: start: 20090922, end: 20091215

REACTIONS (14)
  - SYNCOPE [None]
  - LOSS OF CONSCIOUSNESS [None]
  - RASH [None]
  - PARAESTHESIA [None]
  - SPINAL CORD COMPRESSION [None]
  - CONVULSION [None]
  - DIZZINESS [None]
  - PRODUCT SUBSTITUTION ISSUE [None]
  - HEADACHE [None]
  - BLOOD PRESSURE INCREASED [None]
  - INTERVERTEBRAL DISC PROTRUSION [None]
  - DYSGEUSIA [None]
  - DROOLING [None]
  - NAUSEA [None]
